FAERS Safety Report 5488574-3 (Version None)
Quarter: 2007Q3

REPORT INFORMATION
  Report Type: 
  Country: None (occurrence: None)
  Receive Date: 20070925
  Receipt Date: 20070723
  Transmission Date: 20080115
  Serious: No
  Sender: FDA-Public Use
  Company Number: 2007US001710

PATIENT
  Sex: Female

DRUGS (6)
  1. VESICARE [Suspect]
     Indication: BLADDER DISORDER
     Dosage: 5 MG, UID/QD, ORAL; 5 MG, BID, ORAL
     Route: 048
     Dates: start: 20070601, end: 20070607
  2. VESICARE [Suspect]
     Indication: BLADDER DISORDER
     Dosage: 5 MG, UID/QD, ORAL; 5 MG, BID, ORAL
     Route: 048
     Dates: start: 20070620
  3. TYLENOL PM (DIPHENHYDRAMINE) [Concomitant]
  4. LIPITOR [Concomitant]
  5. EQUATE [Concomitant]
  6. STOOL SOFTENER (DOCUSATE SODIUM) [Concomitant]

REACTIONS (3)
  - CONSTIPATION [None]
  - DRY MOUTH [None]
  - NASOPHARYNGITIS [None]
